FAERS Safety Report 6910170-9 (Version None)
Quarter: 2010Q3

REPORT INFORMATION
  Report Type: 
  Country: None (occurrence: None)
  Receive Date: 20100806
  Receipt Date: 20100802
  Transmission Date: 20110219
  Serious: Yes (Other)
  Sender: FDA-Public Use
  Company Number: US-ASTRAZENECA-2007UW09457

PATIENT
  Age: 22 Year
  Sex: Female
  Weight: 105.2 kg

DRUGS (9)
  1. SEROQUEL [Suspect]
     Dosage: 25 MG TO 200 MG
     Route: 048
     Dates: start: 19970101, end: 20070101
  2. SEROQUEL [Suspect]
     Route: 048
     Dates: start: 20010101
  3. SEROQUEL [Suspect]
     Dosage: 50-100 MG
     Route: 048
     Dates: start: 20020101
  4. RISPERDAL [Suspect]
     Dates: start: 19980101
  5. RISPERDAL [Suspect]
     Dates: start: 20030101, end: 20060101
  6. RISPERDAL [Suspect]
     Dosage: 0.5-2 MG
     Route: 048
     Dates: start: 20050809, end: 20051213
  7. ABILIFY [Concomitant]
     Dosage: HALF AM, HALF PM, 1 HS
     Route: 048
     Dates: start: 20060227
  8. TEGRETOL [Concomitant]
     Dosage: 300-450 MG
     Route: 048
     Dates: start: 20050809
  9. DEPAKOTE [Concomitant]

REACTIONS (3)
  - ABORTION SPONTANEOUS [None]
  - DRUG EXPOSURE DURING PREGNANCY [None]
  - TYPE 2 DIABETES MELLITUS [None]
